FAERS Safety Report 17820023 (Version 1)
Quarter: 2020Q2

REPORT INFORMATION
  Report Type: Spontaneous
  Country: US (occurrence: US)
  Receive Date: 20200525
  Receipt Date: 20200525
  Transmission Date: 20200714
  Serious: No
  Sender: FDA-Public Use
  Company Number: US-INCYTE CORPORATION-2020IN004449

PATIENT

DRUGS (1)
  1. JAKAFI [Suspect]
     Active Substance: RUXOLITINIB
     Indication: CYSTITIS
     Dosage: 10 MILLIGRAM, BID
     Route: 048

REACTIONS (3)
  - Decreased appetite [Unknown]
  - Off label use [Unknown]
  - Headache [Unknown]
